FAERS Safety Report 23444619 (Version 1)
Quarter: 2024Q1

REPORT INFORMATION
  Report Type: Spontaneous
  Country: US (occurrence: None)
  Receive Date: 20240125
  Receipt Date: 20240125
  Transmission Date: 20240410
  Serious: Yes (Hospitalization)
  Sender: FDA-Public Use
  Company Number: None

PATIENT
  Sex: Male

DRUGS (7)
  1. GAMMAGARD LIQUID [Suspect]
     Active Substance: HUMAN IMMUNOGLOBULIN G
     Dosage: STRENGTH: 20GM/200M
     Route: 042
     Dates: start: 202301
  2. GAMMAGARD LIQUID [Suspect]
     Active Substance: HUMAN IMMUNOGLOBULIN G
     Dosage: STRENGTH: 10GM/100M
     Route: 042
     Dates: start: 202301
  3. TACROLIMUS [Suspect]
     Active Substance: TACROLIMUS
  4. MYCOPHENOLATE ORAL SUSP [Concomitant]
  5. SILDENAFIL CITRATE [Concomitant]
  6. OPSUMIT [Concomitant]
     Active Substance: MACITENTAN
  7. TYVASO REFILL KIT [Concomitant]

REACTIONS (1)
  - Lung transplant [None]
